FAERS Safety Report 7586611-3 (Version None)
Quarter: 2011Q3

REPORT INFORMATION
  Report Type: 
  Country: None (occurrence: None)
  Receive Date: 20110701
  Receipt Date: 20110616
  Transmission Date: 20111222
  Serious: Yes (Hospitalization)
  Sender: FDA-Public Use
  Company Number: KR-WATSON-2011-09440

PATIENT
  Sex: Male

DRUGS (5)
  1. VENLAFAXINE HCL [Suspect]
     Dosage: 150 MG, UNK
  2. VENLAFAXINE HCL [Suspect]
     Indication: DEPRESSION
     Dosage: 1500 MG, DAILY (75MG X 20 PILLS)
  3. VENLAFAXINE HCL [Suspect]
     Dosage: 300 MG, UNK
  4. PAROXETINE HYDROCHLORIDE [Suspect]
     Indication: DEPRESSION
     Dosage: UNK
  5. BUPROPION HCL [Suspect]
     Indication: DEPRESSION
     Dosage: UNK

REACTIONS (7)
  - INTENTIONAL DRUG MISUSE [None]
  - WITHDRAWAL SYNDROME [None]
  - HYPERTENSION [None]
  - SUICIDE ATTEMPT [None]
  - DRUG DEPENDENCE [None]
  - TACHYCARDIA [None]
  - DRUG INEFFECTIVE [None]
